FAERS Safety Report 23320284 (Version 1)
Quarter: 2023Q4

REPORT INFORMATION
  Report Type: Other
  Country: US (occurrence: None)
  Receive Date: 20231220
  Receipt Date: 20231220
  Transmission Date: 20240110
  Serious: Yes (Other)
  Sender: FDA-Public Use
  Company Number: US-ROCHE-3475846

PATIENT
  Age: 68 Year
  Sex: Male

DRUGS (1)
  1. ALECENSA [Suspect]
     Active Substance: ALECTINIB HYDROCHLORIDE
     Indication: Lung neoplasm malignant
     Dosage: TAKE 4 CAPSULES BY MOUTH TWICE A DAY WITH FOOD (DO NOT OPEN OR DISSOLVE THE CONTENTS OF THE CAPSULE)
     Route: 048

REACTIONS (2)
  - Illness [Unknown]
  - Brain neoplasm malignant [Unknown]
